FAERS Safety Report 14859788 (Version 1)
Quarter: 2018Q2

REPORT INFORMATION
  Report Type: Spontaneous
  Country: US (occurrence: US)
  Receive Date: 20180508
  Receipt Date: 20180508
  Transmission Date: 20180711
  Serious: Yes (Hospitalization, Other)
  Sender: FDA-Public Use
  Company Number: US-BRISTOL-MYERS SQUIBB COMPANY-BMS-2018-038569

PATIENT
  Sex: Female
  Weight: 63.39 kg

DRUGS (1)
  1. COUMADIN [Suspect]
     Active Substance: WARFARIN SODIUM
     Indication: ATRIAL FIBRILLATION
     Dosage: UNAVAILABLE
     Route: 065
     Dates: start: 201606, end: 201607

REACTIONS (2)
  - Diarrhoea haemorrhagic [Unknown]
  - Small intestinal ulcer haemorrhage [Unknown]
